FAERS Safety Report 13181334 (Version 1)
Quarter: 2017Q1

REPORT INFORMATION
  Report Type: Spontaneous
  Country: TH (occurrence: TH)
  Receive Date: 20170202
  Receipt Date: 20170202
  Transmission Date: 20170428
  Serious: Yes (Other)
  Sender: FDA-Public Use
  Company Number: TH-MYLANLABS-2017M1005721

PATIENT

DRUGS (6)
  1. CIPROFLOXACIN. [Suspect]
     Active Substance: CIPROFLOXACIN
     Indication: PSEUDOMONAL SEPSIS
     Dosage: 400MG
     Route: 041
  2. CIPROFLOXACIN. [Suspect]
     Active Substance: CIPROFLOXACIN
     Indication: CELLULITIS
     Dosage: 400MG
     Route: 041
  3. ADZOPIP [Concomitant]
     Indication: PSEUDOMONAL SEPSIS
     Route: 065
  4. ADZOPIP [Concomitant]
     Indication: CELLULITIS
     Route: 065
  5. LEVOFLOXACIN. [Suspect]
     Active Substance: LEVOFLOXACIN
     Indication: CELLULITIS
     Dosage: 750MG
     Route: 048
  6. LEVOFLOXACIN. [Suspect]
     Active Substance: LEVOFLOXACIN
     Indication: PSEUDOMONAL SEPSIS
     Dosage: 750MG
     Route: 048

REACTIONS (1)
  - Drug cross-reactivity [Unknown]
